FAERS Safety Report 8519943-2 (Version None)
Quarter: 2012Q3

REPORT INFORMATION
  Report Type: 
  Country: None (occurrence: None)
  Receive Date: 20120719
  Receipt Date: 20120705
  Transmission Date: 20120928
  Serious: Yes (Death, Congenital Anomaly, Other)
  Sender: FDA-Public Use
  Company Number: TR-RANBAXY-2012RR-57340

PATIENT

DRUGS (2)
  1. TOPIRAMATE [Suspect]
     Dosage: 100 MG, UNK
     Route: 064
  2. OXCARBAZEPINE [Suspect]
     Dosage: 300 MG, UNK
     Route: 064

REACTIONS (8)
  - OLIGOHYDRAMNIOS [None]
  - DYSPLASIA [None]
  - PERICARDIAL EFFUSION [None]
  - FOETAL EXPOSURE DURING PREGNANCY [None]
  - CARDIOMEGALY [None]
  - LIMB MALFORMATION [None]
  - CLEFT LIP AND PALATE [None]
  - SINGLE FUNCTIONAL KIDNEY [None]
